FAERS Safety Report 24866959 (Version 1)
Quarter: 2025Q1

REPORT INFORMATION
  Report Type: Spontaneous
  Country: US (occurrence: None)
  Receive Date: 20250119
  Receipt Date: 20250119
  Transmission Date: 20250409
  Serious: Yes (Disabling)
  Sender: FDA-CTU
  Company Number: None

PATIENT
  Age: 65 Year
  Sex: Female
  Weight: 45 kg

DRUGS (6)
  1. CIPRO [Suspect]
     Active Substance: CIPROFLOXACIN HYDROCHLORIDE
     Indication: Infection
  2. SIROLIMUS [Concomitant]
     Active Substance: SIROLIMUS
  3. COREG [Concomitant]
     Active Substance: CARVEDILOL
  4. SODIUM BICARBONATE [Concomitant]
     Active Substance: SODIUM BICARBONATE
  5. VITAMIN D [Concomitant]
     Active Substance: VITAMIN D NOS
  6. FLONASE [Concomitant]
     Active Substance: FLUTICASONE PROPIONATE

REACTIONS (3)
  - Neuropathy peripheral [None]
  - Paraesthesia [None]
  - Pain in extremity [None]

NARRATIVE: CASE EVENT DATE: 20250111
